FAERS Safety Report 6351725-2 (Version None)
Quarter: 2009Q3

REPORT INFORMATION
  Report Type: 
  Country: None (occurrence: None)
  Receive Date: 20090912
  Receipt Date: 20090622
  Transmission Date: 20100115
  Serious: No
  Sender: FDA-Public Use
  Company Number: US-ABBOTT-07P-163-0423325-00

PATIENT
  Sex: Female
  Weight: 62.652 kg

DRUGS (4)
  1. HUMIRA [Suspect]
     Indication: RHEUMATOID ARTHRITIS
     Route: 058
     Dates: start: 20071029
  2. HUMIRA [Suspect]
     Route: 058
     Dates: start: 20040101
  3. HUMIRA [Suspect]
     Route: 058
     Dates: start: 20040101, end: 20071029
  4. METHOTREXATE [Concomitant]
     Indication: RHEUMATOID ARTHRITIS
     Route: 048

REACTIONS (5)
  - ARTHRALGIA [None]
  - DRUG INEFFECTIVE [None]
  - INCORRECT DOSE ADMINISTERED [None]
  - INJECTION SITE IRRITATION [None]
  - WRONG TECHNIQUE IN DRUG USAGE PROCESS [None]
